FAERS Safety Report 8439413-X (Version None)
Quarter: 2012Q2

REPORT INFORMATION
  Report Type: 
  Country: None (occurrence: None)
  Receive Date: 20120615
  Receipt Date: 20120605
  Transmission Date: 20120825
  Serious: Yes (Life-Threatening, Hospitalization)
  Sender: FDA-Public Use
  Company Number: MX-JNJFOC-20120602730

PATIENT
  Age: 20 Year
  Sex: Male

DRUGS (14)
  1. INFLIXIMAB, RECOMBINANT [Suspect]
     Route: 042
  2. METHOTREXATE [Suspect]
     Indication: JUVENILE ARTHRITIS
     Route: 065
  3. SULFASALAZINE [Concomitant]
     Route: 065
  4. PREDNISONE [Concomitant]
     Dosage: LOW DOSES
     Route: 048
  5. CHLOROQUINE [Concomitant]
     Route: 065
  6. DEFLAZACORT [Concomitant]
     Route: 065
  7. IBUPROFEN [Concomitant]
     Route: 065
  8. INFLIXIMAB, RECOMBINANT [Suspect]
     Route: 042
  9. INFLIXIMAB, RECOMBINANT [Suspect]
     Dosage: AT THE FOURTH MONTH OF HOSPITALIZATION
     Route: 042
  10. PREDNISONE [Concomitant]
     Route: 048
  11. CORTICOSTEROIDS [Concomitant]
     Route: 042
  12. INFLIXIMAB, RECOMBINANT [Suspect]
     Indication: JUVENILE ARTHRITIS
     Dosage: DOSE INCREASED AND CONTINUED FOR 4 YEARS
     Route: 042
  13. NSAIDS [Concomitant]
     Route: 065
  14. DEXAMETHASONE [Concomitant]
     Route: 042

REACTIONS (2)
  - DISSEMINATED TUBERCULOSIS [None]
  - TUBERCULOSIS OF CENTRAL NERVOUS SYSTEM [None]
